FAERS Safety Report 7584830-3 (Version None)
Quarter: 2011Q2

REPORT INFORMATION
  Report Type: 
  Country: None (occurrence: None)
  Receive Date: 20110630
  Receipt Date: 20110627
  Transmission Date: 20111010
  Serious: Yes (Death, Other)
  Sender: FDA-Public Use
  Company Number: PHHY2011MX42284

PATIENT
  Sex: Female

DRUGS (2)
  1. EXELON [Suspect]
     Indication: DEMENTIA ALZHEIMER'S TYPE
     Dosage: 9.5 MG/10 CM^2 PATCH EACH 24 HOURS
     Route: 062
     Dates: start: 20080101
  2. MEMANTINE HYDROCHLORIDE [Concomitant]

REACTIONS (4)
  - RESPIRATORY ARREST [None]
  - NERVOUS SYSTEM DISORDER [None]
  - CARDIAC DISORDER [None]
  - CEREBRAL INFARCTION [None]
